FAERS Safety Report 14479418 (Version 1)
Quarter: 2018Q1

REPORT INFORMATION
  Report Type: Spontaneous
  Country: US (occurrence: US)
  Receive Date: 20180201
  Receipt Date: 20180201
  Transmission Date: 20180509
  Serious: No
  Sender: FDA-Public Use
  Company Number: None

PATIENT
  Age: 66 Year
  Sex: Male

DRUGS (1)
  1. CAPECITABINE 500MG [Suspect]
     Active Substance: CAPECITABINE
     Indication: GALLBLADDER CANCER
     Route: 048
     Dates: start: 20180108

REACTIONS (3)
  - Abdominal distension [None]
  - Eye pain [None]
  - Fatigue [None]

NARRATIVE: CASE EVENT DATE: 20180110
